FAERS Safety Report 9714439 (Version 1)
Quarter: 2013Q4

REPORT INFORMATION
  Report Type: Spontaneous
  Country: US (occurrence: US)
  Receive Date: 20131126
  Receipt Date: 20131126
  Transmission Date: 20140711
  Serious: Yes (Other)
  Sender: FDA-Public Use
  Company Number: US-PFIZER INC-2013338112

PATIENT
  Sex: Female

DRUGS (1)
  1. LYRICA [Suspect]
     Dosage: UNK

REACTIONS (6)
  - Withdrawal syndrome [Unknown]
  - Suicidal ideation [Unknown]
  - Mental disorder [Unknown]
  - Pain [Unknown]
  - Spinal fracture [Unknown]
  - Neuropathy peripheral [Unknown]
